FAERS Safety Report 5768173-6 (Version None)
Quarter: 2008Q2

REPORT INFORMATION
  Report Type: 
  Country: None (occurrence: None)
  Receive Date: 20080612
  Receipt Date: 20080605
  Transmission Date: 20081010
  Serious: Yes (Other)
  Sender: FDA-Public Use
  Company Number: CA-AMGEN-US285083

PATIENT
  Sex: Female

DRUGS (4)
  1. ARANESP [Suspect]
     Indication: RENAL FAILURE CHRONIC
     Dates: start: 20080516
  2. EPREX [Suspect]
  3. WARFARIN SODIUM [Concomitant]
  4. ANTIBIOTICS [Concomitant]

REACTIONS (2)
  - HAEMOGLOBIN DECREASED [None]
  - SEPSIS [None]
